FAERS Safety Report 10201387 (Version 1)
Quarter: 2014Q2

REPORT INFORMATION
  Report Type: Spontaneous
  Country: US (occurrence: US)
  Receive Date: 20140528
  Receipt Date: 20140528
  Transmission Date: 20141212
  Serious: Yes (Other)
  Sender: FDA-Public Use
  Company Number: US-B.I. PHARMACEUTICALS,INC./RIDGEFIELD-2014-BI-22409BP

PATIENT
  Age: 64 Year
  Sex: Male
  Weight: 89 kg

DRUGS (8)
  1. PRADAXA [Suspect]
     Indication: ATRIAL FIBRILLATION
     Dosage: 300 MG
     Route: 048
     Dates: start: 20140423, end: 20140519
  2. LISINOPRIL [Concomitant]
     Indication: HYPERTENSION
     Dosage: 10 MG
     Route: 048
  3. ATENOLOL [Concomitant]
     Indication: HYPERTENSION
     Dosage: 50 MG
     Route: 048
  4. ATENOLOL [Concomitant]
     Indication: ATRIAL FIBRILLATION
  5. ZOCOR [Concomitant]
     Indication: HYPERCHOLESTEROLAEMIA
     Dosage: 40 MG
     Route: 048
  6. DILTIAZEM [Concomitant]
     Indication: HYPERTENSION
     Dosage: 240 MG
     Route: 048
  7. DILTIAZEM [Concomitant]
     Indication: ATRIAL FIBRILLATION
  8. OMEPRAZOLE [Concomitant]
     Dosage: 40 MG
     Route: 048

REACTIONS (4)
  - Platelet count decreased [Not Recovered/Not Resolved]
  - Blood pressure increased [Not Recovered/Not Resolved]
  - Fungal skin infection [Unknown]
  - Somnolence [Not Recovered/Not Resolved]
